FAERS Safety Report 21311650 (Version 1)
Quarter: 2022Q3

REPORT INFORMATION
  Report Type: Report from Study
  Country: US (occurrence: US)
  Receive Date: 20220909
  Receipt Date: 20220909
  Transmission Date: 20221026
  Serious: Yes (Other)
  Sender: FDA-Public Use
  Company Number: US-BIOGENIDEC-2009BI035110

PATIENT
  Sex: Female

DRUGS (1)
  1. TYSABRI [Suspect]
     Active Substance: NATALIZUMAB
     Indication: Multiple sclerosis
     Route: 050
     Dates: start: 20090217

REACTIONS (20)
  - Blindness [Not Recovered/Not Resolved]
  - Fibromyalgia [Not Recovered/Not Resolved]
  - Osteoarthritis [Not Recovered/Not Resolved]
  - Memory impairment [Not Recovered/Not Resolved]
  - Paraesthesia [Not Recovered/Not Resolved]
  - Pain [Not Recovered/Not Resolved]
  - Optic neuritis [Recovered/Resolved]
  - Myopia [Not Recovered/Not Resolved]
  - Astigmatism [Not Recovered/Not Resolved]
  - Feeling hot [Recovered/Resolved]
  - Bursitis [Unknown]
  - Gastrointestinal disorder [Unknown]
  - Vitamin D deficiency [Recovered/Resolved]
  - Poor venous access [Recovered/Resolved]
  - Mobility decreased [Recovered/Resolved]
  - Hypoaesthesia [Recovered/Resolved]
  - General physical health deterioration [Recovered/Resolved]
  - Multiple sclerosis relapse [Recovered/Resolved]
  - Multiple sclerosis [Not Recovered/Not Resolved]
  - Hot flush [Unknown]

NARRATIVE: CASE EVENT DATE: 20090101
